FAERS Safety Report 13896705 (Version 1)
Quarter: 2017Q3

REPORT INFORMATION
  Report Type: Spontaneous
  Country: FR (occurrence: FR)
  Receive Date: 20170823
  Receipt Date: 20170823
  Transmission Date: 20171127
  Serious: Yes (Other)
  Sender: FDA-Public Use
  Company Number: FR-009507513-1708FRA009783

PATIENT
  Age: 31 Year
  Sex: Male

DRUGS (1)
  1. STROMECTOL [Suspect]
     Active Substance: IVERMECTIN
     Indication: CUTANEOUS LARVA MIGRANS
     Dosage: 12 MG, ONCE
     Route: 048
     Dates: start: 20170804, end: 20170804

REACTIONS (1)
  - Psychotic disorder due to a general medical condition [Recovered/Resolved]

NARRATIVE: CASE EVENT DATE: 20170805
